FAERS Safety Report 8790100 (Version 2)
Quarter: 2012Q4

REPORT INFORMATION
  Report Type: 
  Country: US (occurrence: US)
  Receive Date: 20120917
  Receipt Date: 20121017
  Transmission Date: 20130627
  Serious: Yes (Hospitalization)
  Sender: FDA-Public Use
  Company Number: US-B.I. PHARMACEUTICALS,INC./RIDGEFIELD-2011-BP-05881BP

PATIENT
  Age: 84 None
  Sex: Female
  Weight: 60.33 kg

DRUGS (12)
  1. PRADAXA [Suspect]
     Indication: ATRIAL FIBRILLATION
     Dosage: 300 mg
     Route: 048
     Dates: start: 2010
  2. LASIX [Concomitant]
     Indication: FLUID RETENTION
     Dosage: 80 mg
     Route: 048
  3. FELODIPINE ER [Concomitant]
     Indication: CARDIAC DISORDER
     Dosage: 5 mg
     Route: 048
  4. METOPROLOL [Concomitant]
     Dosage: 50 mg
     Route: 048
  5. ESTROGEN [Concomitant]
     Indication: BLOOD OESTROGEN
     Dosage: 0.5 mg
     Route: 048
  6. SPIRONLACTONE [Concomitant]
     Dosage: 25 mg
  7. POTASSIUM [Concomitant]
     Dosage: 60 mEq
     Route: 048
     Dates: start: 2009
  8. VITAMINS [Concomitant]
  9. LOVASA [Concomitant]
     Route: 048
  10. SUPER STRENGTH D3 [Concomitant]
     Dosage: 2000 U
     Route: 048
     Dates: start: 2009
  11. MAGNESIUM OXIDE [Concomitant]
     Indication: FREQUENT BOWEL MOVEMENTS
     Dosage: 800 mg
     Route: 048
  12. OMEGA KRILL OIL [Concomitant]
     Indication: RESTLESSNESS
     Route: 048

REACTIONS (18)
  - Bradycardia [Unknown]
  - Syncope [Recovered/Resolved]
  - Laceration [Recovered/Resolved]
  - Fall [Recovered/Resolved]
  - Fall [Recovered/Resolved]
  - Hip fracture [Recovered/Resolved]
  - Haematochezia [Not Recovered/Not Resolved]
  - Flatulence [Not Recovered/Not Resolved]
  - Dyspepsia [Not Recovered/Not Resolved]
  - Abdominal discomfort [Not Recovered/Not Resolved]
  - Dyspepsia [Not Recovered/Not Resolved]
  - Pain in extremity [Not Recovered/Not Resolved]
  - Feeling hot [Not Recovered/Not Resolved]
  - Joint swelling [Not Recovered/Not Resolved]
  - Arthralgia [Unknown]
  - Arthralgia [Not Recovered/Not Resolved]
  - Asthenia [Not Recovered/Not Resolved]
  - Arthralgia [Not Recovered/Not Resolved]
